FAERS Safety Report 8913901 (Version 2)
Quarter: 2012Q4

REPORT INFORMATION
  Report Type: 
  Country: US (occurrence: US)
  Receive Date: 20121119
  Receipt Date: 20121122
  Transmission Date: 20130627
  Serious: Yes (Hospitalization, Other)
  Sender: FDA-Public Use
  Company Number: US-AMGEN-USASP2012073503

PATIENT
  Age: 65 Year
  Sex: Male
  Weight: 113.83 kg

DRUGS (1)
  1. ENBREL [Suspect]
     Indication: RHEUMATOID ARTHRITIS
     Dosage: 50 mg, qwk
     Dates: start: 20120831, end: 20121026

REACTIONS (2)
  - Heart rate increased [Recovered/Resolved]
  - Osteoarthritis [Not Recovered/Not Resolved]
